FAERS Safety Report 9273598 (Version 2)
Quarter: 2013Q2

REPORT INFORMATION
  Report Type: Spontaneous
  Country: US (occurrence: US)
  Receive Date: 20130506
  Receipt Date: 20130604
  Transmission Date: 20140414
  Serious: No
  Sender: FDA-Public Use
  Company Number: US-AMGEN-USASP2013027245

PATIENT
  Age: 59 Year
  Sex: Female

DRUGS (3)
  1. ENBREL [Suspect]
     Indication: PSORIASIS
     Dosage: 50 MG, QWK
     Dates: start: 20041222
  2. HUMIRA [Concomitant]
     Dosage: UNK
  3. STELARA [Concomitant]
     Dosage: UNK

REACTIONS (4)
  - Acne [Not Recovered/Not Resolved]
  - Acne pustular [Not Recovered/Not Resolved]
  - Folliculitis [Not Recovered/Not Resolved]
  - Psoriasis [Not Recovered/Not Resolved]
